FAERS Safety Report 8236028-3 (Version None)
Quarter: 2012Q1

REPORT INFORMATION
  Report Type: 
  Country: None (occurrence: None)
  Receive Date: 20120326
  Receipt Date: 20120320
  Transmission Date: 20120608
  Serious: Yes (Other)
  Sender: FDA-Public Use
  Company Number: US-AMGEN-USASP2010009274

PATIENT
  Age: 70 Year
  Sex: Female

DRUGS (18)
  1. NEXIUM [Concomitant]
     Dosage: 40 MG, BID
  2. ENBREL [Suspect]
     Dosage: 50 MG, QWK
     Dates: end: 20110101
  3. ISOSORBIDE MONONITRATE [Concomitant]
     Dosage: 30 MG, QD
     Route: 048
  4. DICLOFENAC SODIUM [Concomitant]
     Dosage: 75 MG, BID
  5. HYDROCHLOROTHIAZIDE [Concomitant]
     Dosage: UNK
  6. SIMVASTATIN [Concomitant]
     Dosage: 40 MG, QD
     Route: 048
  7. NITROSTAT [Concomitant]
     Dosage: 0.4 MG, PRN
  8. ASPIRIN CHILDREN [Concomitant]
     Dosage: 81 MG, QD
     Route: 048
  9. CITALOPRAM HYDROBROMIDE [Concomitant]
     Dosage: 30 MG, QD
     Route: 048
  10. CALCIUM CARBONATE [Concomitant]
     Dosage: 600 MG, QD
  11. TRAMADOL HCL [Concomitant]
     Indication: PAIN
     Dosage: 50 MG, PRN
     Route: 048
  12. LISINOPRIL [Concomitant]
     Dosage: 2.5 MG, QD
     Route: 048
  13. ENBREL [Suspect]
     Indication: RHEUMATOID ARTHRITIS
     Dosage: 50 MG, QWK
     Dates: start: 20110201
  14. PROPRANOLOL [Concomitant]
     Dosage: UNK
  15. TUMS E-X [Concomitant]
     Dosage: 3750 MG, QD
     Route: 048
  16. COREG [Concomitant]
     Dosage: 625 MG, QD
     Route: 048
  17. POTASSIUM 99 [Concomitant]
     Dosage: UNK
  18. CENTRUM [Concomitant]
     Dosage: UNK UNK, QD
     Route: 048

REACTIONS (6)
  - RETINAL DETACHMENT [None]
  - BRONCHITIS [None]
  - RHEUMATOID ARTHRITIS [None]
  - RESPIRATORY DISORDER [None]
  - CHRONIC OBSTRUCTIVE PULMONARY DISEASE [None]
  - VITREOUS FLOATERS [None]
